APPROVED DRUG PRODUCT: MEMANTINE HYDROCHLORIDE
Active Ingredient: MEMANTINE HYDROCHLORIDE
Strength: 10MG
Dosage Form/Route: TABLET;ORAL
Application: A090048 | Product #002 | TE Code: AB
Applicant: DR REDDYS LABORATORIES LTD
Approved: Apr 14, 2010 | RLD: No | RS: No | Type: RX